FAERS Safety Report 12114620 (Version 4)
Quarter: 2016Q3

REPORT INFORMATION
  Report Type: Spontaneous
  Country: PL (occurrence: PL)
  Receive Date: 20160225
  Receipt Date: 20160816
  Transmission Date: 20161109
  Serious: No
  Sender: FDA-Public Use
  Company Number: PL-PFIZER INC-2016047778

PATIENT
  Age: 56 Year
  Sex: Female
  Weight: 82 kg

DRUGS (9)
  1. CORDARONE [Suspect]
     Active Substance: AMIODARONE HYDROCHLORIDE
     Dosage: UNK
  2. ROSWERA [Concomitant]
     Active Substance: ROSUVASTATIN
     Dosage: UNK
  3. MONO MACK [Concomitant]
     Active Substance: ISOSORBIDE MONONITRATE
     Dosage: UNK
  4. LACIPIL [Concomitant]
     Active Substance: LACIDIPINE
  5. FUROSEMID [Concomitant]
     Active Substance: FUROSEMIDE
     Dosage: UNK
  6. NEBILET [Concomitant]
     Active Substance: NEBIVOLOL
     Dosage: UNK
  7. CORDARONE [Suspect]
     Active Substance: AMIODARONE HYDROCHLORIDE
     Indication: ARRHYTHMIA
     Dosage: 200 MG, 1X/DAY
     Route: 048
     Dates: start: 20140203, end: 201408
  8. KALDYUM [Concomitant]
     Active Substance: POTASSIUM CHLORIDE
     Dosage: UNK
  9. PRITOR /01421801/ [Concomitant]
     Dosage: UNK

REACTIONS (2)
  - Drug hypersensitivity [Recovered/Resolved]
  - Skin disorder [Recovered/Resolved]

NARRATIVE: CASE EVENT DATE: 201408
